FAERS Safety Report 7487414-0 (Version None)
Quarter: 2011Q2

REPORT INFORMATION
  Report Type: 
  Country: None (occurrence: None)
  Receive Date: 20110510
  Receipt Date: 20110427
  Transmission Date: 20111010
  Serious: Yes (Hospitalization, Congenital Anomaly)
  Sender: FDA-Public Use
  Company Number: 1000020668

PATIENT

DRUGS (2)
  1. CORTISONE (CORTISONE) (CORTISONE) [Concomitant]
  2. ESCITALOPRAM [Suspect]
     Dosage: 10 MG (10 MG,1 IN 1 D),TRANSPLACENTAL
     Route: 064

REACTIONS (4)
  - CAESAREAN SECTION [None]
  - CONGENITAL PULMONARY VALVE DISORDER [None]
  - MATERNAL DRUGS AFFECTING FOETUS [None]
  - RENAL APLASIA [None]
